FAERS Safety Report 9056610 (Version 1)
Quarter: 2013Q1

REPORT INFORMATION
  Report Type: Spontaneous
  Country: US (occurrence: US)
  Receive Date: 20130204
  Receipt Date: 20130204
  Transmission Date: 20140127
  Serious: Yes (Other)
  Sender: FDA-Public Use
  Company Number: US-ELI_LILLY_AND_COMPANY-US201301007733

PATIENT
  Sex: Female

DRUGS (2)
  1. BYDUREON [Suspect]
     Dosage: 2 MG, WEEKLY (1/W)
     Route: 058
     Dates: start: 20130117
  2. BYETTA [Concomitant]
     Dosage: UNK
     Route: 058

REACTIONS (4)
  - Dyspnoea [Recovering/Resolving]
  - Urticaria [Recovering/Resolving]
  - Respiratory fume inhalation disorder [Recovering/Resolving]
  - Pruritus [Recovering/Resolving]
